FAERS Safety Report 8607401 (Version 4)
Quarter: 2013Q3

REPORT INFORMATION
  Report Type: Spontaneous
  Country: US (occurrence: US)
  Receive Date: 20120611
  Receipt Date: 20130925
  Transmission Date: 20140515
  Serious: Yes (Hospitalization, Disabling, Other)
  Sender: FDA-Public Use
  Company Number: US-ASTRAZENECA-2012SE35233

PATIENT
  Age: 633 Month
  Sex: Male
  Weight: 83.9 kg

DRUGS (22)
  1. NEXIUM [Suspect]
     Indication: GASTROOESOPHAGEAL REFLUX DISEASE
     Route: 048
     Dates: start: 20010706
  2. NEXIUM [Suspect]
     Indication: GASTROOESOPHAGEAL REFLUX DISEASE
     Route: 048
     Dates: start: 20120729
  3. NEXIUM [Suspect]
     Indication: GASTROOESOPHAGEAL REFLUX DISEASE
     Dosage: THREE TIME
     Route: 048
     Dates: start: 20060109
  4. NEXIUM [Suspect]
     Indication: GASTROOESOPHAGEAL REFLUX DISEASE
     Route: 048
     Dates: start: 20100802
  5. NORTRIPTYLINE [Concomitant]
     Dosage: 25 TO 75 MG
     Dates: start: 20010315
  6. ZOCOR [Concomitant]
     Dates: start: 20010417
  7. LORAZEPAM [Concomitant]
     Dates: start: 20010417
  8. LORAZEPAM [Concomitant]
     Dates: start: 20120629
  9. CIMETIDINE [Concomitant]
     Dates: start: 20010417
  10. OXYCODONE/APAP [Concomitant]
     Dosage: 7.5/500
     Dates: start: 20010703
  11. PROMETHAZINE [Concomitant]
     Dates: start: 20010805
  12. MEPERIDINE HCL [Concomitant]
     Dates: start: 20010805
  13. CELEXA [Concomitant]
     Dates: start: 20010829
  14. ZOLOFT [Concomitant]
     Dates: start: 20011120
  15. ZYPREXA [Concomitant]
     Dates: start: 20011120
  16. DOCU SOFT PLUS [Concomitant]
     Dosage: 100/30
     Dates: start: 20011120
  17. CLONIDINE [Concomitant]
     Dates: start: 20011120
  18. CYPROHEPTADINE [Concomitant]
     Dates: start: 20011120
  19. RA VITAMIN D [Concomitant]
     Route: 048
     Dates: start: 20120727
  20. CITRACAL-VIT D MAGNESIUM [Concomitant]
     Route: 048
     Dates: start: 20120725
  21. NORTRIPTYLINE HCL [Concomitant]
     Dates: start: 20120609
  22. CRESTOR [Concomitant]
     Route: 048
     Dates: start: 20120507

REACTIONS (8)
  - Hip fracture [Unknown]
  - Lower limb fracture [Unknown]
  - Femur fracture [Unknown]
  - Osteoporosis [Unknown]
  - Vitamin D deficiency [Unknown]
  - Arthropathy [Unknown]
  - Depression [Unknown]
  - Tendonitis [Unknown]
